FAERS Safety Report 22684544 (Version 3)
Quarter: 2023Q4

REPORT INFORMATION
  Report Type: Spontaneous
  Country: US (occurrence: US)
  Receive Date: 20230710
  Receipt Date: 20231024
  Transmission Date: 20240110
  Serious: No
  Sender: FDA-Public Use
  Company Number: US-NATCOUSA-2023-NATCOUSA-000158

PATIENT
  Age: 75 Year
  Sex: Female

DRUGS (2)
  1. LETROZOLE [Suspect]
     Active Substance: LETROZOLE
     Indication: Ovarian cancer
     Dosage: LETROZOLE 2.5 MG
     Route: 065
  2. ROSUVASTATIN [Concomitant]
     Active Substance: ROSUVASTATIN
     Dosage: CRESTOR 20MG.

REACTIONS (11)
  - Platelet count decreased [Unknown]
  - Blood glucose increased [Unknown]
  - White blood cell count decreased [Not Recovered/Not Resolved]
  - Blood creatinine increased [Unknown]
  - Glomerular filtration rate decreased [Unknown]
  - Blood insulin decreased [Unknown]
  - Blood bilirubin increased [Unknown]
  - Drug ineffective for unapproved indication [Unknown]
  - Red blood cell count decreased [Not Recovered/Not Resolved]
  - Neutrophil count decreased [Not Recovered/Not Resolved]
  - Off label use [Unknown]
